FAERS Safety Report 18651869 (Version 4)
Quarter: 2021Q1

REPORT INFORMATION
  Report Type: Spontaneous
  Country: GB (occurrence: GB)
  Receive Date: 20201222
  Receipt Date: 20210225
  Transmission Date: 20210419
  Serious: Yes (Death, Hospitalization, Other)
  Sender: FDA-Public Use
  Company Number: GB-DSJP-DSE-2020-139091

PATIENT
  Age: 91 Year
  Sex: Male
  Weight: 70 kg

DRUGS (3)
  1. LIXIANA [Suspect]
     Active Substance: EDOXABAN TOSYLATE
     Indication: ATRIAL FIBRILLATION
     Dosage: 30 MG, QD
     Route: 048
     Dates: start: 20191106, end: 20201025
  2. MEMANTINE. [Concomitant]
     Active Substance: MEMANTINE
     Indication: DEMENTIA ALZHEIMER^S TYPE
     Dosage: UNK
     Dates: start: 20200309
  3. ZOPICLON [Concomitant]
     Active Substance: ZOPICLONE
     Indication: SLEEP DISORDER
     Dosage: UNK
     Dates: start: 20191106

REACTIONS (15)
  - Blood test abnormal [Unknown]
  - Dehydration [Unknown]
  - COVID-19 [Fatal]
  - Weight decreased [Unknown]
  - Cerebrovascular accident [Unknown]
  - Renal haemorrhage [Unknown]
  - Sepsis [Unknown]
  - Faeces discoloured [Unknown]
  - Renal impairment [Unknown]
  - Diarrhoea [Fatal]
  - Oxygen saturation decreased [Unknown]
  - Dementia [Unknown]
  - Cardiac disorder [Unknown]
  - Internal haemorrhage [Unknown]
  - Anaemia [Unknown]

NARRATIVE: CASE EVENT DATE: 2020
